FAERS Safety Report 7248518-0 (Version None)
Quarter: 2011Q1

REPORT INFORMATION
  Report Type: 
  Country: None (occurrence: None)
  Receive Date: 20110127
  Receipt Date: 20101215
  Transmission Date: 20110831
  Serious: Yes (Hospitalization, Other)
  Sender: FDA-Public Use
  Company Number: JP-MERCK-1012USA03103

PATIENT
  Age: 44 Year
  Sex: Male
  Weight: 90 kg

DRUGS (9)
  1. MIANSERIN HYDROCHLORIDE [Concomitant]
     Route: 048
     Dates: start: 20070401
  2. PEPCID RPD [Suspect]
     Indication: GASTRITIS
     Route: 048
     Dates: start: 20070401, end: 20100129
  3. AMLODIPINE BESYLATE [Concomitant]
     Route: 048
     Dates: start: 20070401
  4. NEULEPTIL [Suspect]
     Indication: DELIRIUM
     Route: 048
     Dates: start: 20070401, end: 20100129
  5. TEGRETOL [Concomitant]
     Route: 048
     Dates: start: 20070401
  6. AKINETON TABLETS [Suspect]
     Indication: DELIRIUM
     Route: 048
     Dates: start: 20070401, end: 20100129
  7. RIVOTRIL [Concomitant]
     Route: 048
     Dates: start: 20070401
  8. VEGETAMIN B [Suspect]
     Indication: DELIRIUM
     Route: 048
     Dates: start: 20070401, end: 20100129
  9. ROHYPNOL [Suspect]
     Indication: DELIRIUM
     Route: 048
     Dates: start: 20070401, end: 20100126

REACTIONS (4)
  - SLEEP-RELATED EATING DISORDER [None]
  - DIABETES MELLITUS [None]
  - DELIRIUM [None]
  - RESTLESS LEGS SYNDROME [None]
